FAERS Safety Report 9118294 (Version 1)
Quarter: 2013Q1

REPORT INFORMATION
  Report Type: Spontaneous
  Country: US (occurrence: None)
  Receive Date: 20130221
  Receipt Date: 20130221
  Transmission Date: 20140127
  Serious: Yes (Other)
  Sender: FDA-Public Use
  Company Number: None

PATIENT
  Age: 75 Year
  Sex: Female
  Weight: 86.18 kg

DRUGS (6)
  1. ISOSORBIDE 60MG [Suspect]
     Indication: CHEST PAIN
     Dosage: 60MG 1-DAY ORAL
     Route: 048
  2. FUROSEMIDE [Concomitant]
  3. AMLODIPINE [Concomitant]
  4. NITROSTAT [Concomitant]
  5. KLOR-CON [Concomitant]
  6. ASPIRIN [Concomitant]

REACTIONS (3)
  - Chest pain [None]
  - Pruritus [None]
  - Dry mouth [None]
